FAERS Safety Report 9895804 (Version 1)
Quarter: 2014Q1

REPORT INFORMATION
  Report Type: Spontaneous
  Country: US (occurrence: US)
  Receive Date: 20140213
  Receipt Date: 20140213
  Transmission Date: 20141002
  Serious: No
  Sender: FDA-Public Use
  Company Number: US-BRISTOL-MYERS SQUIBB COMPANY-19535582

PATIENT
  Age: 57 Year
  Sex: Male
  Weight: 81.63 kg

DRUGS (2)
  1. ABATACEPT SUBQ INJECTION 125MG/ML [Suspect]
     Dosage: 1DF: 125MG/ML,PFS(4PACK)
     Route: 058
  2. PERCOCET TABS 5 MG/325 MG [Concomitant]
     Dosage: 1DF: 5 MG/325 MG

REACTIONS (1)
  - Drug ineffective [Unknown]
